FAERS Safety Report 4687105-5 (Version None)
Quarter: 2005Q2

REPORT INFORMATION
  Report Type: 
  Country: None (occurrence: None)
  Receive Date: 20050608
  Receipt Date: 20050526
  Transmission Date: 20051028
  Serious: Yes (Life-Threatening, Hospitalization)
  Sender: FDA-Public Use
  Company Number: CTP20050012

PATIENT
  Age: 23 Year
  Sex: Male

DRUGS (2)
  1. CITALOPRAM  40 MG [Suspect]
     Indication: DEPRESSION
     Dosage: 920 MG ONCE PO
     Route: 048
     Dates: start: 20020513, end: 20020513
  2. TRAZODONE [Concomitant]

REACTIONS (10)
  - BUNDLE BRANCH BLOCK RIGHT [None]
  - CARDIOTOXICITY [None]
  - ELECTROCARDIOGRAM QT CORRECTED INTERVAL PROLONGED [None]
  - ELECTROCARDIOGRAM ST-T CHANGE [None]
  - GRAND MAL CONVULSION [None]
  - OVERDOSE [None]
  - SUICIDAL IDEATION [None]
  - SUICIDE ATTEMPT [None]
  - SUPRAVENTRICULAR TACHYCARDIA [None]
  - VENTRICULAR FIBRILLATION [None]
